FAERS Safety Report 20436403 (Version 6)
Quarter: 2022Q2

REPORT INFORMATION
  Report Type: Spontaneous
  Country: CH (occurrence: CH)
  Receive Date: 20220207
  Receipt Date: 20220407
  Transmission Date: 20220721
  Serious: Yes (Other)
  Sender: FDA-Public Use
  Company Number: CH-NOVARTISPH-NVSC2022CH024780

PATIENT
  Age: 88 Year
  Sex: Female

DRUGS (4)
  1. AZOPT [Suspect]
     Active Substance: BRINZOLAMIDE
     Indication: Intraocular pressure test abnormal
     Dosage: UNK, QD
     Route: 065
  2. AZOPT [Suspect]
     Active Substance: BRINZOLAMIDE
     Dosage: UNK, QD
     Route: 065
  3. CELLUFLUID [Concomitant]
     Indication: Product used for unknown indication
     Dosage: UNK, DAILY
     Route: 065
  4. LATANOPROST [Concomitant]
     Active Substance: LATANOPROST
     Indication: Product used for unknown indication
     Dosage: UNK, DAILY
     Route: 065

REACTIONS (4)
  - Superficial injury of eye [Not Recovered/Not Resolved]
  - Foreign body sensation in eyes [Not Recovered/Not Resolved]
  - Blindness transient [Not Recovered/Not Resolved]
  - Liquid product physical issue [Unknown]

NARRATIVE: CASE EVENT DATE: 20220102
